FAERS Safety Report 10098530 (Version 1)
Quarter: 2014Q2

REPORT INFORMATION
  Report Type: Spontaneous
  Country: IN (occurrence: IN)
  Receive Date: 20140423
  Receipt Date: 20140423
  Transmission Date: 20141212
  Serious: Yes (Hospitalization)
  Sender: FDA-Public Use
  Company Number: IN-ROXANE LABORATORIES, INC.-2014-RO-00630RO

PATIENT
  Age: 75 Year
  Sex: Female

DRUGS (2)
  1. IMIPRAMINE PAMOATE [Suspect]
     Indication: MENTAL DISORDER
     Dosage: 25 MG
     Route: 065
  2. IMIPRAMINE PAMOATE [Suspect]
     Indication: SLEEP DISORDER

REACTIONS (1)
  - Interstitial lung disease [Not Recovered/Not Resolved]
